FAERS Safety Report 5358943-0 (Version None)
Quarter: 2007Q2

REPORT INFORMATION
  Report Type: 
  Country: None (occurrence: None)
  Receive Date: 20070615
  Receipt Date: 20070607
  Transmission Date: 20071010
  Serious: Yes (Hospitalization, Other)
  Sender: FDA-Public Use
  Company Number: B0475239A

PATIENT
  Age: 60 Year
  Sex: Male

DRUGS (7)
  1. ACYCLOVIR [Suspect]
     Indication: HERPES ZOSTER
     Dosage: 800MG TWICE PER DAY
     Route: 048
     Dates: start: 20070319, end: 20070328
  2. ACYCLOVIR [Suspect]
     Dosage: 300MG PER DAY
     Route: 042
     Dates: start: 20070328, end: 20070329
  3. IRBESARTAN [Concomitant]
     Indication: HYPERTENSION
     Dosage: 300MG PER DAY
     Route: 048
     Dates: end: 20061219
  4. LANSOPRAZOLE [Concomitant]
     Indication: GASTROINTESTINAL DISORDER
     Dosage: 15MG PER DAY
     Route: 048
  5. PRAVASTATIN [Concomitant]
     Indication: BLOOD CHOLESTEROL INCREASED
     Dosage: 40MG PER DAY
     Route: 048
  6. SEVELAMER [Concomitant]
     Dosage: 2400MG THREE TIMES PER DAY
     Route: 065
  7. TRANDOLAPRIL [Concomitant]
     Indication: HYPERTENSION
     Dosage: 4MG PER DAY
     Route: 048

REACTIONS (3)
  - GLASGOW COMA SCALE ABNORMAL [None]
  - HALLUCINATION, AUDITORY [None]
  - NEUROTOXICITY [None]
